FAERS Safety Report 8851269 (Version 1)
Quarter: 2012Q4

REPORT INFORMATION
  Report Type: 
  Country: SE (occurrence: SE)
  Receive Date: 20121019
  Receipt Date: 20121019
  Transmission Date: 20130627
  Serious: Yes (Other)
  Sender: FDA-Public Use
  Company Number: PHHY2012SE090335

PATIENT
  Sex: Female

DRUGS (1)
  1. METOPROLOL [Suspect]
     Route: 048
     Dates: end: 20120214

REACTIONS (2)
  - Aphasia [Unknown]
  - Dizziness [Unknown]
